FAERS Safety Report 11499456 (Version 1)
Quarter: 2015Q3

REPORT INFORMATION
  Report Type: Spontaneous
  Country: US (occurrence: US)
  Receive Date: 20150914
  Receipt Date: 20150914
  Transmission Date: 20151125
  Serious: No
  Sender: FDA-Public Use
  Company Number: US-TEVA-551178USA

PATIENT
  Sex: Female

DRUGS (1)
  1. GLIPIZIDE. [Suspect]
     Active Substance: GLIPIZIDE
     Indication: DIABETES MELLITUS
     Route: 065

REACTIONS (5)
  - Vision blurred [Unknown]
  - Headache [Unknown]
  - Blood glucose increased [Unknown]
  - Diarrhoea [Unknown]
  - Drug ineffective [Unknown]
